FAERS Safety Report 13075968 (Version 1)
Quarter: 2016Q4

REPORT INFORMATION
  Report Type: Spontaneous
  Country: US (occurrence: US)
  Receive Date: 20161229
  Receipt Date: 20161229
  Transmission Date: 20170207
  Serious: Yes (Hospitalization)
  Sender: FDA-Public Use
  Company Number: None

PATIENT
  Age: 17 Year
  Sex: Male
  Weight: 89 kg

DRUGS (4)
  1. CYCLOPHOSPHAMIDE. [Suspect]
     Active Substance: CYCLOPHOSPHAMIDE
     Dates: end: 20161103
  2. CYTARABINE. [Suspect]
     Active Substance: CYTARABINE
     Dates: end: 20161113
  3. METHOTREXATE. [Suspect]
     Active Substance: METHOTREXATE
     Dates: end: 20161110
  4. MERCAPTOPURINE. [Suspect]
     Active Substance: MERCAPTOPURINE
     Dates: end: 20161112

REACTIONS (7)
  - Facial paralysis [None]
  - Somnolence [None]
  - Nausea [None]
  - Aphasia [None]
  - Dysarthria [None]
  - Leukoencephalopathy [None]
  - Drooling [None]

NARRATIVE: CASE EVENT DATE: 20161113
